FAERS Safety Report 6583572-0 (Version None)
Quarter: 2010Q1

REPORT INFORMATION
  Report Type: 
  Country: None (occurrence: None)
  Receive Date: 20100216
  Receipt Date: 20100212
  Transmission Date: 20100710
  Serious: Yes (Death, Other)
  Sender: FDA-Public Use
  Company Number: BR-ABBOTT-10P-020-0625888-00

PATIENT
  Sex: Male

DRUGS (2)
  1. HUMIRA [Suspect]
     Indication: RHEUMATOID ARTHRITIS
     Route: 058
     Dates: start: 20090201
  2. ARAVA [Concomitant]
     Indication: RHEUMATOID ARTHRITIS
     Route: 048

REACTIONS (6)
  - CATARACT [None]
  - CEREBROVASCULAR ACCIDENT [None]
  - HEADACHE [None]
  - ISCHAEMIA [None]
  - VENOUS OCCLUSION [None]
  - VISUAL ACUITY REDUCED [None]
